FAERS Safety Report 9780686 (Version 1)
Quarter: 2013Q4

REPORT INFORMATION
  Report Type: Spontaneous
  Country: DE (occurrence: DE)
  Receive Date: 20131224
  Receipt Date: 20131224
  Transmission Date: 20140711
  Serious: Yes (Hospitalization, Congenital Anomaly, Other)
  Sender: FDA-Public Use
  Company Number: GXKR2013DE003866

PATIENT
  Sex: 0

DRUGS (4)
  1. OLANZAPINE [Suspect]
     Indication: SCHIZOPHRENIA
     Dosage: MATERNAL DOSE 20 MG/D
     Route: 064
  2. LORAZEPAM [Suspect]
     Dosage: 4 MG/D
     Route: 064
  3. DOPEGYT [Concomitant]
     Route: 064
  4. AMOXICILLIN [Concomitant]
     Route: 064

REACTIONS (6)
  - Hypotonia neonatal [Unknown]
  - Retrognathia [Unknown]
  - Feeding disorder neonatal [Recovered/Resolved]
  - Blood creatine phosphokinase MB increased [Recovered/Resolved]
  - Myoglobin blood increased [Recovered/Resolved]
  - Blood lactate dehydrogenase increased [Recovered/Resolved]
